FAERS Safety Report 5570090-1 (Version None)
Quarter: 2007Q4

REPORT INFORMATION
  Report Type: 
  Country: None (occurrence: None)
  Receive Date: 20071218
  Receipt Date: 20071204
  Transmission Date: 20080405
  Serious: Yes (Hospitalization)
  Sender: FDA-Public Use
  Company Number: 2007P1000716

PATIENT
  Age: 43 Year
  Sex: Female

DRUGS (2)
  1. BUSULFAN (BUSULFAN) [Suspect]
     Indication: STEM CELL TRANSPLANT
     Dosage: 18.9 ML; 25.2 ML; 6.3 ML; QD; IV
     Route: 042
  2. VALPROATE SODIUM [Concomitant]

REACTIONS (13)
  - ANOREXIA [None]
  - BACTERIAL SEPSIS [None]
  - CYTOMEGALOVIRUS VIRAEMIA [None]
  - DIARRHOEA [None]
  - FEBRILE NEUTROPENIA [None]
  - HEPATIC FUNCTION ABNORMAL [None]
  - HYPERGLYCAEMIA [None]
  - NAUSEA [None]
  - PLATELET COUNT DECREASED [None]
  - PSEUDOMONAL SEPSIS [None]
  - STOMATITIS [None]
  - VOMITING [None]
  - WHITE BLOOD CELL COUNT DECREASED [None]
